FAERS Safety Report 13243295 (Version 1)
Quarter: 2017Q1

REPORT INFORMATION
  Report Type: Spontaneous
  Country: US (occurrence: US)
  Receive Date: 20170217
  Receipt Date: 20170217
  Transmission Date: 20170428
  Serious: No
  Sender: FDA-Public Use
  Company Number: US-WEST-WARD PHARMACEUTICALS CORP.-US-H14001-16-01761

PATIENT
  Age: 30 Year
  Sex: Female
  Weight: 49.94 kg

DRUGS (2)
  1. CLARITIN-D 12 HOUR [Concomitant]
     Active Substance: LORATADINE\PSEUDOEPHEDRINE SULFATE
     Indication: EAR PAIN
     Route: 065
     Dates: start: 201608
  2. FLUTICASONE PROPIONATE. [Suspect]
     Active Substance: FLUTICASONE PROPIONATE
     Indication: SEASONAL ALLERGY
     Dosage: 1 SPRAY IN EACH NOSTRIL
     Route: 045
     Dates: start: 20160821

REACTIONS (4)
  - Intentional product use issue [Not Recovered/Not Resolved]
  - Dysgeusia [Unknown]
  - Drug hypersensitivity [Unknown]
  - Parosmia [Not Recovered/Not Resolved]

NARRATIVE: CASE EVENT DATE: 20160821
